FAERS Safety Report 24962328 (Version 1)
Quarter: 2025Q1

REPORT INFORMATION
  Report Type: Spontaneous
  Country: ES (occurrence: ES)
  Receive Date: 20250212
  Receipt Date: 20250212
  Transmission Date: 20250408
  Serious: Yes (Death, Hospitalization)
  Sender: TEVA
  Company Number: None

PATIENT
  Age: 88 Year
  Sex: Female

DRUGS (1)
  1. PROPAFENONE [Suspect]
     Active Substance: PROPAFENONE
     Indication: Atrial fibrillation
     Dosage: 1 PER DAY, 60 TABLETS
     Route: 048
     Dates: start: 20200101, end: 20250119

REACTIONS (3)
  - Cardiogenic shock [Fatal]
  - Sinus bradycardia [Fatal]
  - Electrocardiogram QRS complex prolonged [Fatal]

NARRATIVE: CASE EVENT DATE: 20250119
